FAERS Safety Report 5176087-8 (Version None)
Quarter: 2006Q4

REPORT INFORMATION
  Report Type: 
  Country: None (occurrence: None)
  Receive Date: 20061215
  Receipt Date: 20060630
  Transmission Date: 20070319
  Serious: No
  Sender: FDA-Public Use
  Company Number: US-AMGEN-KDL184935

PATIENT
  Sex: Female

DRUGS (3)
  1. ENBREL [Suspect]
     Indication: RHEUMATOID ARTHRITIS
     Route: 058
     Dates: start: 20060609
  2. PLAQUENIL [Concomitant]
     Route: 048
     Dates: start: 20060518
  3. ARAVA [Concomitant]
     Route: 048
     Dates: start: 20060118

REACTIONS (2)
  - CONTUSION [None]
  - INJECTION SITE BRUISING [None]
